FAERS Safety Report 24416469 (Version 1)
Quarter: 2024Q4

REPORT INFORMATION
  Report Type: Report from Study
  Country: CO (occurrence: CO)
  Receive Date: 20241009
  Receipt Date: 20241009
  Transmission Date: 20250115
  Serious: Yes (Disabling)
  Sender: BRISTOL MYERS SQUIBB
  Company Number: CO-BRISTOL-MYERS SQUIBB COMPANY-2024-158407

PATIENT
  Age: 87 Year
  Sex: Female
  Weight: 38 kg

DRUGS (2)
  1. OPDIVO [Suspect]
     Active Substance: NIVOLUMAB
     Indication: Malignant melanoma
     Dosage: DOSE: 87 MG/ML FREQUENCY: EVERY 28 DAYS
     Route: 042
     Dates: start: 20240928
  2. IPILIMUMAB [Suspect]
     Active Substance: IPILIMUMAB
     Indication: Malignant melanoma
     Dosage: DOSE: 261 MG/ML FREQUENCY: EVERY 28 DAYS
     Route: 042
     Dates: start: 20240928

REACTIONS (4)
  - Dizziness [Recovered/Resolved]
  - Discouragement [Recovered/Resolved]
  - Somnolence [Recovered/Resolved]
  - Off label use [Unknown]

NARRATIVE: CASE EVENT DATE: 20240928
